FAERS Safety Report 15350060 (Version 7)
Quarter: 2018Q4

REPORT INFORMATION
  Report Type: Report from Study
  Country: None (occurrence: NL)
  Receive Date: 20180904
  Receipt Date: 20181122
  Transmission Date: 20190204
  Serious: Yes (Hospitalization)
  Sender: FDA-Public Use
  Company Number: NL-ABBVIE-18K-114-2417218-00

PATIENT
  Age: 73 Year
  Sex: Male
  Weight: 92 kg

DRUGS (12)
  1. DUODOPA [Suspect]
     Active Substance: CARBIDOPA\LEVODOPA
     Dosage: MD: 10.5, CD: 2.5, ED: 1
     Route: 050
     Dates: start: 201807, end: 2018
  2. DUODOPA [Suspect]
     Active Substance: CARBIDOPA\LEVODOPA
     Dosage: NIGHT PUMP IS INCREASED TO 1.3 AND DAY PUMP IS INCREASED TO 2.3
     Route: 050
     Dates: start: 2018, end: 2018
  3. ANTIBIOTICS [Concomitant]
     Active Substance: UNSPECIFIED INGREDIENT
     Indication: PRODUCT USED FOR UNKNOWN INDICATION
  4. DUODOPA [Suspect]
     Active Substance: CARBIDOPA\LEVODOPA
     Dosage: MD: 10.5, CD: 2.3, ED: 1
     Route: 050
     Dates: start: 2018, end: 2018
  5. DUODOPA [Suspect]
     Active Substance: CARBIDOPA\LEVODOPA
     Dosage: MD: 9.0, CD: 2.3, ED: 1.0, CND: 1.3, END: 1.0
     Route: 050
     Dates: start: 2018
  6. DUODOPA [Suspect]
     Active Substance: CARBIDOPA\LEVODOPA
     Dosage: INCREASE THE NIGHTLY CD BY 0.2 ML/HR TO 1.2 ML/HR.
     Route: 050
     Dates: start: 201808, end: 2018
  7. DUODOPA [Suspect]
     Active Substance: CARBIDOPA\LEVODOPA
     Dosage: MD: 9.0, CD: 2.1, ED: 1.0?NIGHT CONTINUOUS DOSE 1 EXTRA DOSE 1
     Route: 050
     Dates: start: 2018, end: 20180828
  8. DUODOPA [Suspect]
     Active Substance: CARBIDOPA\LEVODOPA
     Dosage: PATIENT MISSED THE MORNING DOSE
     Route: 050
     Dates: start: 20180828, end: 20180828
  9. ROPINIROLE. [Concomitant]
     Active Substance: ROPINIROLE
     Indication: PRODUCT USED FOR UNKNOWN INDICATION
     Dosage: INCREASED THE NIGHTLY CD BY 0.2 ML/HR TO 1.2 ML/HR.
     Route: 065
  10. DUODOPA [Suspect]
     Active Substance: CARBIDOPA\LEVODOPA
     Indication: PARKINSON^S DISEASE
     Dosage: MD: 10.5, CD: 2.4, ED: 1
     Route: 050
     Dates: start: 201806, end: 20180703
  11. DUODOPA [Suspect]
     Active Substance: CARBIDOPA\LEVODOPA
     Dosage: MD: 10.5, CD: 2.6, ED: 1
     Route: 050
     Dates: start: 20180703, end: 201807
  12. DUODOPA [Suspect]
     Active Substance: CARBIDOPA\LEVODOPA
     Dosage: MD: 9.0, CD: 2.1, ED: 1.0?NIGHT CONTINUOUS DOSE 1 EXTRA DOSE 1
     Route: 050
     Dates: start: 20180828, end: 201808

REACTIONS (24)
  - Device use issue [Not Recovered/Not Resolved]
  - Nocturia [Not Recovered/Not Resolved]
  - Agitation [Not Recovered/Not Resolved]
  - Hallucination [Not Recovered/Not Resolved]
  - Middle insomnia [Not Recovered/Not Resolved]
  - On and off phenomenon [Not Recovered/Not Resolved]
  - Increased appetite [Not Recovered/Not Resolved]
  - Dyskinesia [Recovered/Resolved]
  - Mobility decreased [Not Recovered/Not Resolved]
  - Stress [Not Recovered/Not Resolved]
  - Urinary tract infection [Unknown]
  - Tension [Not Recovered/Not Resolved]
  - Malaise [Not Recovered/Not Resolved]
  - Freezing phenomenon [Not Recovered/Not Resolved]
  - Stoma site discharge [Recovering/Resolving]
  - Tremor [Not Recovered/Not Resolved]
  - Social avoidant behaviour [Not Recovered/Not Resolved]
  - Dyskinesia [Recovered/Resolved]
  - Muscle rigidity [Not Recovered/Not Resolved]
  - Weight increased [Not Recovered/Not Resolved]
  - Discomfort [Not Recovered/Not Resolved]
  - Unevaluable event [Not Recovered/Not Resolved]
  - Restlessness [Unknown]
  - Device dislocation [Unknown]

NARRATIVE: CASE EVENT DATE: 2018
